FAERS Safety Report 8313098-5 (Version None)
Quarter: 2012Q2

REPORT INFORMATION
  Report Type: 
  Country: None (occurrence: None)
  Receive Date: 20120426
  Receipt Date: 20120418
  Transmission Date: 20120825
  Serious: Yes (Hospitalization, Other)
  Sender: FDA-Public Use
  Company Number: MX-RANBAXY-2012RR-55804

PATIENT
  Age: 76 Year
  Sex: Female

DRUGS (2)
  1. METFORMIN HCL [Suspect]
     Indication: TYPE 2 DIABETES MELLITUS
     Dosage: 850 MG/ 8H
     Route: 065
  2. IBUPROFEN [Suspect]
     Indication: BACK PAIN
     Dosage: UNK
     Route: 065

REACTIONS (2)
  - LACTIC ACIDOSIS [None]
  - DRUG INTERACTION [None]
